FAERS Safety Report 5712110-7 (Version None)
Quarter: 2008Q2

REPORT INFORMATION
  Report Type: 
  Country: None (occurrence: None)
  Receive Date: 20080417
  Receipt Date: 20080411
  Transmission Date: 20081010
  Serious: Yes (Death, Hospitalization)
  Sender: FDA-Public Use
  Company Number: 2008-175381-NL

PATIENT
  Age: 83 Year
  Sex: Female

DRUGS (3)
  1. MIRTAZAPINE [Suspect]
     Dosage: 30 MG
     Dates: start: 20050919, end: 20051009
  2. CITALOPRAM HYDROBROMIDE [Suspect]
     Dosage: 20 MG
     Dates: start: 20050927, end: 20051009
  3. MELPERONE HYDROCHLORIDE [Suspect]
     Dosage: 75 MG
     Dates: start: 20050927, end: 20051009

REACTIONS (1)
  - DEATH [None]
